FAERS Safety Report 5021182-7 (Version None)
Quarter: 2006Q2

REPORT INFORMATION
  Report Type: 
  Country: None (occurrence: None)
  Receive Date: 20060425
  Receipt Date: 20050615
  Transmission Date: 20061013
  Serious: Yes (Other)
  Sender: FDA-Public Use
  Company Number: WAES 0506USA02286

PATIENT
  Age: 9 Year
  Sex: Male

DRUGS (2)
  1. SINGULAIR [Suspect]
     Indication: RHINITIS SEASONAL
     Dosage: 5MG DAILY PO
     Route: 048
     Dates: start: 20050501, end: 20050501
  2. PREVACID [Concomitant]

REACTIONS (1)
  - ANGIONEUROTIC OEDEMA [None]
